FAERS Safety Report 5053119-9 (Version None)
Quarter: 2006Q3

REPORT INFORMATION
  Report Type: 
  Country: None (occurrence: None)
  Receive Date: 20060717
  Receipt Date: 20060711
  Transmission Date: 20061208
  Serious: Yes (Hospitalization)
  Sender: FDA-Public Use
  Company Number: FR-SANOFI-SYNTHELABO-F01200601633

PATIENT
  Sex: Male

DRUGS (7)
  1. GEMZAR [Suspect]
     Route: 042
     Dates: start: 20060524, end: 20060525
  2. ERBITUX [Suspect]
     Route: 042
     Dates: start: 20060531, end: 20060531
  3. RAMIPRIL [Concomitant]
     Indication: HYPERTENSION
     Route: 065
  4. VERAPAMIL [Concomitant]
     Indication: HYPERTENSION
     Route: 065
     Dates: start: 20060524
  5. PROPRANOLOL [Concomitant]
     Indication: HYPERTENSION
     Route: 065
  6. FUROSEMIDE [Concomitant]
     Indication: HYPERTENSION
     Route: 065
  7. OXALIPLATIN [Suspect]
     Indication: COLORECTAL CANCER
     Route: 042
     Dates: start: 20060525, end: 20060525

REACTIONS (1)
  - PHLEBITIS [None]
